FAERS Safety Report 6411730-4 (Version None)
Quarter: 2009Q4

REPORT INFORMATION
  Report Type: 
  Country: None (occurrence: None)
  Receive Date: 20091023
  Receipt Date: 20091016
  Transmission Date: 20100525
  Serious: No
  Sender: FDA-Public Use
  Company Number: B0598892A

PATIENT

DRUGS (2)
  1. RELENZA [Suspect]
     Indication: INFLUENZA
     Dosage: 20MG PER DAY
     Route: 055
     Dates: start: 20091014, end: 20091014
  2. RELENZA [Suspect]
     Route: 055
     Dates: start: 20091015

REACTIONS (1)
  - OVERDOSE [None]
